FAERS Safety Report 13873411 (Version 2)
Quarter: 2017Q3

REPORT INFORMATION
  Report Type: Spontaneous
  Country: US (occurrence: US)
  Receive Date: 20170816
  Receipt Date: 20170828
  Transmission Date: 20171127
  Serious: Yes (Hospitalization, Other)
  Sender: FDA-Public Use
  Company Number: US-PURDUE PHARMA-USA-2017-0140328

PATIENT
  Sex: Male

DRUGS (2)
  1. METHADONE [Suspect]
     Active Substance: METHADONE HYDROCHLORIDE
     Indication: PAIN
     Dosage: UNK
     Route: 065
  2. OXYCODONE HYDROCHLORIDE (SIMILAR TO NDA 22-272) [Suspect]
     Active Substance: OXYCODONE HYDROCHLORIDE
     Indication: PAIN
     Dosage: UNK
     Route: 048

REACTIONS (7)
  - Victim of child abuse [Recovering/Resolving]
  - Trichotillomania [Recovering/Resolving]
  - Hospitalisation [Recovering/Resolving]
  - Sedation [Recovering/Resolving]
  - Unevaluable event [Recovering/Resolving]
  - Drug administered to patient of inappropriate age [Recovered/Resolved]
  - Constipation [Recovering/Resolving]
